FAERS Safety Report 8286464-4 (Version None)
Quarter: 2012Q2

REPORT INFORMATION
  Report Type: 
  Country: None (occurrence: None)
  Receive Date: 20120416
  Receipt Date: 20120412
  Transmission Date: 20120825
  Serious: Yes (Other)
  Sender: FDA-Public Use
  Company Number: US-PFIZER INC-2012092376

PATIENT
  Sex: Female
  Weight: 45.351 kg

DRUGS (1)
  1. LYRICA [Suspect]
     Indication: HERPES ZOSTER
     Dosage: 75 MG, 2X/DAY
     Route: 048
     Dates: start: 20120401

REACTIONS (6)
  - MENTAL IMPAIRMENT [None]
  - DIZZINESS [None]
  - TREMOR [None]
  - FATIGUE [None]
  - ABASIA [None]
  - HALLUCINATION [None]
